FAERS Safety Report 6537431-X (Version None)
Quarter: 2010Q1

REPORT INFORMATION
  Report Type: 
  Country: None (occurrence: None)
  Receive Date: 20100107
  Receipt Date: 20091222
  Transmission Date: 20100710
  Serious: Yes (Life-Threatening)
  Sender: FDA-Public Use
  Company Number: 2009SP035773

PATIENT
  Age: 58 Year
  Sex: Female
  Weight: 40 kg

DRUGS (4)
  1. REMERON [Suspect]
     Indication: DEPRESSION
     Dosage: 15 MG;PO ; 30 MG;PO
     Route: 048
     Dates: start: 20091029, end: 20091106
  2. REMERON [Suspect]
     Indication: DEPRESSION
     Dosage: 15 MG;PO ; 30 MG;PO
     Route: 048
     Dates: start: 20091107, end: 20091108
  3. ANAFRANIL [Suspect]
     Indication: DEPRESSION
     Dosage: 50 MG;IV
     Route: 042
     Dates: start: 20091029, end: 20091110
  4. LUVOX [Suspect]
     Indication: DEPRESSION
     Dosage: PO
     Route: 048
     Dates: start: 20090311, end: 20091031

REACTIONS (1)
  - SEROTONIN SYNDROME [None]
